FAERS Safety Report 8532214 (Version 3)
Quarter: 2013Q2

REPORT INFORMATION
  Report Type: Spontaneous
  Country: CA (occurrence: CA)
  Receive Date: 20120426
  Receipt Date: 20130627
  Transmission Date: 20140414
  Serious: Yes (Death, Hospitalization, Other)
  Sender: FDA-Public Use
  Company Number: CA-JNJFOC-20120407160

PATIENT
  Age: 70 Year
  Sex: Male
  Weight: 78 kg

DRUGS (5)
  1. REMICADE [Suspect]
     Indication: CROHN^S DISEASE
     Route: 042
     Dates: start: 20070209, end: 20130129
  2. CALCIUM [Concomitant]
     Route: 065
  3. VITAMIN D [Concomitant]
     Route: 065
  4. IMURAN [Concomitant]
     Route: 065
  5. CARVEDILOL [Concomitant]
     Route: 065

REACTIONS (1)
  - Hepatic neoplasm [Fatal]
